FAERS Safety Report 4681042-8 (Version None)
Quarter: 2005Q2

REPORT INFORMATION
  Report Type: 
  Country: None (occurrence: None)
  Receive Date: 20050601
  Receipt Date: 20050601
  Transmission Date: 20051028
  Serious: Yes (Hospitalization)
  Sender: FDA-Public Use
  Company Number: None

PATIENT
  Sex: Female
  Weight: 73.9363 kg

DRUGS (7)
  1. GEMCITABINE [Suspect]
     Indication: PANCREATIC CARCINOMA
     Dosage: 1000MG/M2  QW X 3 INTRAVENOUS
     Route: 042
     Dates: start: 20050203, end: 20050526
  2. DECADCRON [Concomitant]
  3. ZOFRAN PRE CHEMOTHERAPY [Concomitant]
  4. NORVASC [Concomitant]
  5. LANTUS [Concomitant]
  6. INSULIN [Concomitant]
  7. VITAMINS [Concomitant]

REACTIONS (3)
  - BLOOD BILIRUBIN INCREASED [None]
  - JAUNDICE [None]
  - PYREXIA [None]
